FAERS Safety Report 9370302 (Version 1)
Quarter: 2013Q2

REPORT INFORMATION
  Report Type: Report from Study
  Country: GB (occurrence: GB)
  Receive Date: 20130626
  Receipt Date: 20130626
  Transmission Date: 20140414
  Serious: Yes (Death, Other)
  Sender: FDA-Public Use
  Company Number: GB-ROCHE-1238179

PATIENT
  Sex: 0

DRUGS (4)
  1. CAPECITABINE [Suspect]
     Indication: OESOPHAGEAL CARCINOMA
     Dosage: DAY 1 TO DAY 21 EVERY THREE WEEKLY
     Route: 048
  2. CISPLATIN [Suspect]
     Indication: OESOPHAGEAL CARCINOMA
     Dosage: ON DAY 1
     Route: 042
  3. CETUXIMAB [Suspect]
     Indication: OESOPHAGEAL CARCINOMA
     Dosage: ON DAY 1
     Route: 042
  4. CETUXIMAB [Suspect]
     Route: 042

REACTIONS (27)
  - Cerebrovascular accident [Fatal]
  - Multi-organ failure [Fatal]
  - Pulmonary embolism [Fatal]
  - Myocardial ischaemia [Unknown]
  - Acne [Unknown]
  - Haematotoxicity [Unknown]
  - Palmar-plantar erythrodysaesthesia syndrome [Unknown]
  - Rash [Unknown]
  - Hypomagnesaemia [Unknown]
  - Hypokalaemia [Unknown]
  - Hypophosphataemia [Unknown]
  - Hyponatraemia [Unknown]
  - Hyperuricaemia [Unknown]
  - Dyspnoea [Unknown]
  - Fatigue [Unknown]
  - Weight decreased [Unknown]
  - Diarrhoea [Unknown]
  - Dysphagia [Unknown]
  - Stomatitis [Unknown]
  - Nausea [Unknown]
  - Oesophagitis [Unknown]
  - Vomiting [Unknown]
  - Decreased appetite [Unknown]
  - Infection [Unknown]
  - Febrile neutropenia [Unknown]
  - Neurotoxicity [Unknown]
  - Thrombosis [Unknown]
